FAERS Safety Report 4352250-0 (Version None)
Quarter: 2004Q2

REPORT INFORMATION
  Report Type: 
  Country: None (occurrence: None)
  Receive Date: 20040420
  Receipt Date: 20030219
  Transmission Date: 20050107
  Serious: Yes (Hospitalization, Other)
  Sender: FDA-Public Use
  Company Number: 200311618US

PATIENT
  Age: 35 Year
  Sex: Female

DRUGS (1)
  1. DDAVP [Suspect]
     Indication: VON WILLEBRAND'S DISEASE
     Dosage: TID IN
     Route: 045

REACTIONS (2)
  - CONVULSION [None]
  - HYPONATRAEMIA [None]
